FAERS Safety Report 6666571-X (Version None)
Quarter: 2010Q2

REPORT INFORMATION
  Report Type: 
  Country: None (occurrence: None)
  Receive Date: 20100404
  Receipt Date: 20100303
  Transmission Date: 20101027
  Serious: No
  Sender: FDA-Public Use
  Company Number: US-BAYER-201012739BCC

PATIENT
  Age: 53 Year
  Sex: Female
  Weight: 64 kg

DRUGS (10)
  1. ALEVE [Suspect]
     Indication: FIBROMYALGIA
     Dosage: TOTAL DAILY DOSE: 440 MG  UNIT DOSE: 220 MG
     Route: 048
     Dates: start: 20100201
  2. ALEVE [Suspect]
     Dosage: UNIT DOSE: 220 MG
     Route: 048
     Dates: end: 20100301
  3. ASPIRIN [Suspect]
     Indication: SINUS HEADACHE
     Dosage: TOTAL DAILY DOSE: 650 MG  UNIT DOSE: 325 MG
     Route: 048
     Dates: start: 20100303
  4. IBUPROFEN [Suspect]
     Indication: SINUS HEADACHE
     Route: 065
     Dates: start: 20100302, end: 20100302
  5. LEXAPRO [Concomitant]
     Route: 065
  6. VITAMIN B COMPLEX CAP [Concomitant]
     Route: 065
  7. VITAMIN C [Concomitant]
     Route: 065
  8. SUNDOWN CALCIUM PLUS D [Concomitant]
     Route: 065
  9. MAGNESIUM [Concomitant]
     Route: 065
  10. SYNTHROID [Concomitant]
     Route: 065

REACTIONS (5)
  - EYE PAIN [None]
  - FIBROMYALGIA [None]
  - HEADACHE [None]
  - PAIN [None]
  - SINUS HEADACHE [None]
